FAERS Safety Report 9943434 (Version 6)
Quarter: 2014Q3

REPORT INFORMATION
  Report Type: Report from Study
  Country: US (occurrence: US)
  Receive Date: 20140303
  Receipt Date: 20140815
  Transmission Date: 20150326
  Serious: Yes (Other)
  Sender: FDA-Public Use
  Company Number: US-SANOFI-AVENTIS-2013SA084741

PATIENT
  Age: 43 Year
  Sex: Female
  Weight: 77.11 kg

DRUGS (21)
  1. AUBAGIO [Suspect]
     Active Substance: TERIFLUNOMIDE
     Indication: MULTIPLE SCLEROSIS
     Dosage: TAKEN FROM: 2 MONTHS AGO
     Route: 048
     Dates: start: 20130801, end: 20140328
  2. PROVIGIL [Concomitant]
     Active Substance: MODAFINIL
     Indication: FATIGUE
     Dates: start: 200102
  3. BACLOFEN. [Concomitant]
     Active Substance: BACLOFEN
  4. MEPERIDINE [Concomitant]
     Active Substance: MEPERIDINE
     Dosage: 1-2 PRN EVERY 4 HOURS
  5. PROPANOLOL [Concomitant]
     Active Substance: PROPRANOLOL HYDROCHLORIDE
     Indication: HYPERTENSION
     Route: 065
  6. TIZANIDINE [Concomitant]
     Active Substance: TIZANIDINE
     Dosage: 1 PRN EVERY 8 HOURS
  7. MECLIZINE [Concomitant]
     Active Substance: MECLIZINE\MECLIZINE HYDROCHLORIDE
  8. CYMBALTA [Concomitant]
     Active Substance: DULOXETINE HYDROCHLORIDE
     Indication: PAIN
     Dates: start: 200102
  9. DULOXETINE HYDROCHLORIDE. [Concomitant]
     Active Substance: DULOXETINE HYDROCHLORIDE
  10. ZOLPIDEM [Concomitant]
     Active Substance: ZOLPIDEM\ZOLPIDEM TARTRATE
  11. PREGABALIN. [Concomitant]
     Active Substance: PREGABALIN
  12. MODAFINIL. [Concomitant]
     Active Substance: MODAFINIL
  13. PANTOPRAZOLE [Concomitant]
     Active Substance: PANTOPRAZOLE SODIUM
     Dosage: DELAYED RELEASE (DR/EC) 1 DAILY
  14. AUBAGIO [Suspect]
     Active Substance: TERIFLUNOMIDE
     Indication: MULTIPLE SCLEROSIS
     Dosage: TAKEN FROM: 2 MONTHS AGO
     Route: 048
     Dates: start: 20130801, end: 20140328
  15. TOPIRAMATE. [Concomitant]
     Active Substance: TOPIRAMATE
  16. CORTICOSTEROID NOS [Concomitant]
     Active Substance: CORTICOSTEROID NOS
  17. METOPROLOL [Concomitant]
     Active Substance: METOPROLOL
     Indication: HYPERTENSION
     Dosage: STRENGTH: 25 MG
     Dates: start: 201303
  18. CYMBALTA [Concomitant]
     Active Substance: DULOXETINE HYDROCHLORIDE
     Indication: DEPRESSION
     Dates: start: 200102
  19. DIAZEPAM. [Concomitant]
     Active Substance: DIAZEPAM
     Dosage: 1/2 DAILY
  20. IMPLANON [Concomitant]
     Active Substance: ETONOGESTREL
     Route: 058
  21. TRAMADOL [Concomitant]
     Active Substance: TRAMADOL
     Dosage: 1 DF PRN EVERY 6 HOURS

REACTIONS (19)
  - Optic neuritis [Recovered/Resolved]
  - Neuropathy peripheral [Not Recovered/Not Resolved]
  - Muscle tightness [Not Recovered/Not Resolved]
  - Arthralgia [Not Recovered/Not Resolved]
  - Diarrhoea [Unknown]
  - Pupillary reflex impaired [Unknown]
  - Multiple sclerosis [Not Recovered/Not Resolved]
  - Pain [Not Recovered/Not Resolved]
  - Skin burning sensation [Unknown]
  - Paraesthesia [Not Recovered/Not Resolved]
  - Back pain [Not Recovered/Not Resolved]
  - Paraesthesia [Unknown]
  - Multiple sclerosis relapse [Unknown]
  - Visual field defect [Recovered/Resolved]
  - Eye pain [Recovered/Resolved]
  - Chest pain [Not Recovered/Not Resolved]
  - Colour blindness [Unknown]
  - Visual acuity reduced [Recovered/Resolved]
  - Vision blurred [Recovered/Resolved]

NARRATIVE: CASE EVENT DATE: 20140218
